FAERS Safety Report 8139651 (Version 3)
Quarter: 2013Q2

REPORT INFORMATION
  Report Type: Report from Study
  Country: FR (occurrence: FR)
  Receive Date: 20110916
  Receipt Date: 20130403
  Transmission Date: 20140414
  Serious: Yes (Death)
  Sender: FDA-Public Use
  Company Number: FR-B.I. PHARMACEUTICALS,INC./RIDGEFIELD-2011-DE-05086GD

PATIENT
  Sex: 0

DRUGS (1)
  1. DABIGATRAN ETEXILATE [Suspect]
     Route: 048

REACTIONS (1)
  - Cerebral haemorrhage [Fatal]
